FAERS Safety Report 17251329 (Version 1)
Quarter: 2019Q4

REPORT INFORMATION
  Report Type: Spontaneous
  Country: US (occurrence: US)
  Receive Date: 20191216
  Receipt Date: 20191216
  Transmission Date: 20200122
  Serious: Yes (Hospitalization)
  Sender: FDA-Public Use
  Company Number: None

PATIENT
  Age: 62 Year
  Sex: Male

DRUGS (30)
  1. COENZYME Q10 [Concomitant]
     Active Substance: UBIDECARENONE
  2. GLUCOSAMINE [Concomitant]
     Active Substance: GLUCOSAMINE
  3. LOSARTAN POT [Concomitant]
     Active Substance: LOSARTAN POTASSIUM
  4. OMEPRAZOLE. [Concomitant]
     Active Substance: OMEPRAZOLE
  5. ATORVASTATIN [Concomitant]
     Active Substance: ATORVASTATIN
  6. LINZESS [Concomitant]
     Active Substance: LINACLOTIDE
  7. METOPROL TAR [Concomitant]
  8. TRAMADOL HCL [Concomitant]
     Active Substance: TRAMADOL HYDROCHLORIDE
  9. CYMBALTA [Concomitant]
     Active Substance: DULOXETINE HYDROCHLORIDE
  10. FLUTICASONE. [Concomitant]
     Active Substance: FLUTICASONE
  11. LEVOTHYROXIN [Concomitant]
     Active Substance: LEVOTHYROXINE
  12. MULTI-VITAMIN [Concomitant]
     Active Substance: .ALPHA.-TOCOPHEROL ACETATE, DL-\ASCORBIC ACID\CYANOCOBALAMIN\FLUORIDE ION\FOLIC ACID\NIACIN\PYRIDOXINE\RIBOFLAVIN\THIAMINE\VITAMIN A\VITAMIN D
  13. PROPRANOLOL [Concomitant]
     Active Substance: PROPRANOLOL HYDROCHLORIDE
  14. CELEBREX [Concomitant]
     Active Substance: CELECOXIB
  15. E400 [Concomitant]
  16. GARLIC. [Concomitant]
     Active Substance: GARLIC
  17. LANTUS [Concomitant]
     Active Substance: INSULIN GLARGINE
  18. LYRICA [Concomitant]
     Active Substance: PREGABALIN
  19. VICTOZA [Concomitant]
     Active Substance: LIRAGLUTIDE
  20. COSENTYX [Suspect]
     Active Substance: SECUKINUMAB
     Indication: PSORIASIS
     Dosage: ?          OTHER FREQUENCY:EVERY 4 WEEKS;?
     Route: 058
     Dates: start: 20191121
  21. FUROSEMIDE. [Concomitant]
     Active Substance: FUROSEMIDE
  22. B12 ACTIVE CHW [Concomitant]
  23. HYDRALAZINE [Concomitant]
     Active Substance: HYDRALAZINE HYDROCHLORIDE
  24. B6 FOLIC ACD [Concomitant]
  25. VITAMIN D3 [Concomitant]
     Active Substance: CHOLECALCIFEROL
  26. ELIQUIS [Concomitant]
     Active Substance: APIXABAN
  27. FOLIC ACID. [Concomitant]
     Active Substance: FOLIC ACID
  28. OMEGA 3 [Concomitant]
     Active Substance: OMEGA-3 FATTY ACIDS
  29. FEXOFENADINE [Concomitant]
     Active Substance: FEXOFENADINE HYDROCHLORIDE
  30. NUVAIL [Concomitant]
     Active Substance: DEVICE

REACTIONS (1)
  - Cellulitis [None]
